FAERS Safety Report 23056001 (Version 1)
Quarter: 2023Q4

REPORT INFORMATION
  Report Type: Spontaneous
  Country: US (occurrence: None)
  Receive Date: 20231011
  Receipt Date: 20231011
  Transmission Date: 20240110
  Serious: No
  Sender: FDA-Public Use
  Company Number: None

PATIENT
  Age: 65 Year
  Sex: Female

DRUGS (1)
  1. HUMIRA [Suspect]
     Active Substance: ADALIMUMAB
     Indication: Uveitis
     Dosage: FREQUENCY : EVERY OTHER WEEK;?
     Route: 058
     Dates: start: 202209

REACTIONS (9)
  - Infection [None]
  - Therapy interrupted [None]
  - Skin exfoliation [None]
  - Skin exfoliation [None]
  - Peripheral swelling [None]
  - Gait disturbance [None]
  - Melanoderma [None]
  - Skin wrinkling [None]
  - Obstruction gastric [None]
